FAERS Safety Report 22010815 (Version 1)
Quarter: 2023Q1

REPORT INFORMATION
  Report Type: Spontaneous
  Country: JP (occurrence: JP)
  Receive Date: 20230220
  Receipt Date: 20230220
  Transmission Date: 20230417
  Serious: Yes (Death, Hospitalization, Other)
  Sender: FDA-Public Use
  Company Number: JP-MSD-M2022-41150

PATIENT
  Age: 6 Decade
  Sex: Female

DRUGS (4)
  1. KEYTRUDA [Suspect]
     Active Substance: PEMBROLIZUMAB
     Indication: Uterine cancer
     Dosage: 200 MILLIGRAM, Q3W
     Route: 041
     Dates: start: 20220912
  2. LENVATINIB MESYLATE [Suspect]
     Active Substance: LENVATINIB MESYLATE
     Indication: Uterine cancer
     Dosage: 20 MILLIGRAM, QD
     Route: 048
     Dates: start: 20220912, end: 2022
  3. TELMISARTAN [Concomitant]
     Active Substance: TELMISARTAN
     Dosage: 40 MILLIGRAM, QD
     Route: 048
  4. MESALAMINE [Concomitant]
     Active Substance: MESALAMINE
     Dosage: 2400 MILLIGRAM, QD
     Route: 048

REACTIONS (7)
  - Malignant neoplasm progression [Fatal]
  - Groin pain [Recovering/Resolving]
  - Discouragement [Unknown]
  - Hypertension [Recovering/Resolving]
  - Back pain [Unknown]
  - Fatigue [Unknown]
  - Constipation [Unknown]

NARRATIVE: CASE EVENT DATE: 20220916
